FAERS Safety Report 24893674 (Version 1)
Quarter: 2025Q1

REPORT INFORMATION
  Report Type: Spontaneous
  Country: US (occurrence: US)
  Receive Date: 20250128
  Receipt Date: 20250128
  Transmission Date: 20250409
  Serious: No
  Sender: TEVA
  Company Number: US-TEVA-VS-3285673

PATIENT

DRUGS (1)
  1. LORAZEPAM [Suspect]
     Active Substance: LORAZEPAM
     Indication: Anxiety
     Route: 065

REACTIONS (8)
  - Nausea [Unknown]
  - Hyperhidrosis [Unknown]
  - Vomiting [Unknown]
  - Drug ineffective [Unknown]
  - Hypertension [Unknown]
  - Heart rate increased [Unknown]
  - Tremor [Unknown]
  - Anxiety [Unknown]
